FAERS Safety Report 6538445-6 (Version None)
Quarter: 2010Q1

REPORT INFORMATION
  Report Type: 
  Country: None (occurrence: None)
  Receive Date: 20100114
  Receipt Date: 20100108
  Transmission Date: 20100710
  Serious: Yes (Death)
  Sender: FDA-Public Use
  Company Number: FR-AMGEN-QUU384261

PATIENT
  Sex: Male

DRUGS (13)
  1. MIMPARA [Suspect]
     Indication: HYPERPARATHYROIDISM SECONDARY
  2. PROPRANOLOL [Concomitant]
  3. FLECAINIDE ACETATE [Concomitant]
  4. APROVEL [Concomitant]
     Route: 048
  5. EUPRESSYL [Concomitant]
  6. ALLOPURINOL [Concomitant]
  7. TAHOR [Concomitant]
  8. PANTOPRAZOLE [Concomitant]
  9. CEFAZOLIN [Concomitant]
     Route: 042
  10. DIPRIVAN [Concomitant]
     Route: 042
     Dates: start: 20090915
  11. SUFENTANIL CITRATE [Concomitant]
     Route: 042
     Dates: start: 20090915
  12. TRACRIUM [Concomitant]
     Route: 042
     Dates: start: 20090915
  13. UNSPECIFIED MEDICATION [Concomitant]
     Route: 042
     Dates: start: 20090915

REACTIONS (2)
  - HYPOTENSION [None]
  - VENTRICULAR ARRHYTHMIA [None]
